FAERS Safety Report 9931106 (Version 1)
Quarter: 2014Q1

REPORT INFORMATION
  Report Type: Spontaneous
  Country: SE (occurrence: SE)
  Receive Date: 20140227
  Receipt Date: 20140227
  Transmission Date: 20141002
  Serious: Yes (Hospitalization)
  Sender: FDA-Public Use
  Company Number: SE-BRISTOL-MYERS SQUIBB COMPANY-20217444

PATIENT
  Age: 87 Year
  Sex: Female

DRUGS (11)
  1. ELIQUIS [Suspect]
     Indication: ATRIAL FIBRILLATION
     Dosage: FILMDRAGERAD TABLET
     Route: 048
     Dates: start: 20131015, end: 20131125
  2. OMEPRAZOLE [Concomitant]
  3. HYDROCHLOROTHIAZIDE [Concomitant]
  4. LOMIR [Concomitant]
  5. KALEORID [Concomitant]
  6. CITODON [Concomitant]
  7. METOPROLOL [Concomitant]
  8. PANODIL [Concomitant]
  9. IBUMETIN [Concomitant]
  10. IMOVANE [Concomitant]
  11. SIMVASTATIN [Concomitant]

REACTIONS (1)
  - Diarrhoea [Recovered/Resolved]
